FAERS Safety Report 25070936 (Version 1)
Quarter: 2025Q1

REPORT INFORMATION
  Report Type: Spontaneous
  Country: US (occurrence: US)
  Receive Date: 20250312
  Receipt Date: 20250312
  Transmission Date: 20250409
  Serious: No
  Sender: MYLAN
  Company Number: US-MYLANLABS-2025M1016904

PATIENT
  Sex: Female

DRUGS (1)
  1. POTASSIUM CHLORIDE [Suspect]
     Active Substance: POTASSIUM CHLORIDE
     Indication: Product used for unknown indication
     Dosage: 750 MILLIGRAM, BID (2 PILLS A DAY)

REACTIONS (4)
  - Product residue present [Unknown]
  - Product substitution issue [Unknown]
  - Product coating issue [Unknown]
  - Product solubility abnormal [Unknown]
